FAERS Safety Report 7483068-8 (Version None)
Quarter: 2011Q2

REPORT INFORMATION
  Report Type: 
  Country: None (occurrence: None)
  Receive Date: 20110516
  Receipt Date: 20110510
  Transmission Date: 20111010
  Serious: Yes (Life-Threatening)
  Sender: FDA-Public Use
  Company Number: JP-PFIZER INC-JP-WYE-H08464509

PATIENT
  Age: 79 Year
  Sex: Female
  Weight: 40 kg

DRUGS (6)
  1. ANCARON [Concomitant]
     Dosage: UNK
     Route: 048
     Dates: start: 20080922, end: 20081018
  2. NIFEKALANT HYDROCHLORIDE [Concomitant]
     Dosage: UNK
     Route: 042
     Dates: start: 20081018, end: 20081020
  3. AMIODARONE HYDROCHLORIDE [Suspect]
     Dosage: 12 ML/HR
     Route: 042
     Dates: start: 20081025, end: 20081026
  4. AMIODARONE HYDROCHLORIDE [Suspect]
     Indication: VENTRICULAR TACHYCARDIA
     Dosage: 17 ML/HR
     Route: 042
     Dates: start: 20081020, end: 20081025
  5. AMIODARONE HYDROCHLORIDE [Suspect]
     Dosage: 15 ML/HR
     Route: 042
     Dates: start: 20081025, end: 20081025
  6. INOVAN [Concomitant]
     Dosage: UNK
     Route: 042
     Dates: start: 20081018, end: 20081020

REACTIONS (1)
  - LIVER DISORDER [None]
